FAERS Safety Report 5824787-6 (Version None)
Quarter: 2008Q3

REPORT INFORMATION
  Report Type: 
  Country: None (occurrence: None)
  Receive Date: 20080728
  Receipt Date: 20080721
  Transmission Date: 20090109
  Serious: Yes (Other)
  Sender: FDA-Public Use
  Company Number: BR-ASTRAZENECA-2008UW14486

PATIENT
  Age: 60 Year
  Sex: Female
  Weight: 59 kg

DRUGS (4)
  1. CRESTOR [Suspect]
     Indication: HYPERCHOLESTEROLAEMIA
     Route: 048
     Dates: end: 20080710
  2. CRESTOR [Suspect]
     Route: 048
     Dates: start: 20080711
  3. SELOZOK [Concomitant]
     Indication: HYPERTENSION
     Dates: start: 20060101
  4. SYNTHROID [Concomitant]
     Indication: HYPERTHYROIDISM
     Dates: start: 20030101

REACTIONS (2)
  - ANGINA PECTORIS [None]
  - HYPERCHOLESTEROLAEMIA [None]
